FAERS Safety Report 13333341 (Version 2)
Quarter: 2017Q1

REPORT INFORMATION
  Report Type: Spontaneous
  Country: US (occurrence: US)
  Receive Date: 20170313
  Receipt Date: 20170330
  Transmission Date: 20170428
  Serious: Yes (Death, Other)
  Sender: FDA-Public Use
  Company Number: US-SAREPTA THERAPEUTICS, INC-SRP-000018-2017

PATIENT
  Age: 27 Year
  Sex: Male

DRUGS (12)
  1. NIZORAL [Concomitant]
     Active Substance: KETOCONAZOLE
     Indication: RASH
     Dosage: USE BID ON THE RASH ON FACE AND UNDER ARMS
     Route: 061
  2. CHOLESTYRAMINE POWD [Concomitant]
     Indication: PRODUCT USED FOR UNKNOWN INDICATION
     Dosage: 9 G, QD
     Route: 048
  3. TRPROL-XL [Concomitant]
     Indication: PRODUCT USED FOR UNKNOWN INDICATION
     Dosage: 50 MG, QD
     Route: 048
  4. VITAMIN D, ERGOCALCIFEROL [Concomitant]
     Indication: OSTEOPOROSIS
     Dosage: ONCE A WEEK FOR 12 WEEKS
     Route: 065
  5. CALCIUM CITRATE [Concomitant]
     Active Substance: CALCIUM CITRATE
     Indication: PRODUCT USED FOR UNKNOWN INDICATION
     Dosage: UNK
     Route: 065
  6. DELTASONE [Concomitant]
     Active Substance: PREDNISONE
     Indication: PRODUCT USED FOR UNKNOWN INDICATION
     Dosage: 4 TABLETS TWICE WEEKLY ON SATURDAY AND SUNDAY
     Route: 065
  7. EXONDYS 51 [Suspect]
     Active Substance: ETEPLIRSEN
     Indication: DUCHENNE MUSCULAR DYSTROPHY
     Dosage: 3000 MG, WEEKLY
     Route: 065
     Dates: start: 20170130, end: 20170222
  8. ZYRTEC [Concomitant]
     Active Substance: CETIRIZINE HYDROCHLORIDE
     Dosage: 10 MG, QD
     Route: 048
  9. PROLIA [Concomitant]
     Active Substance: DENOSUMAB
     Indication: PRODUCT USED FOR UNKNOWN INDICATION
     Dosage: 1 ML, EVERY 6 MONTHS
     Route: 058
  10. HYDROCORTISONE. [Concomitant]
     Active Substance: HYDROCORTISONE
     Indication: PRODUCT USED FOR UNKNOWN INDICATION
     Dosage: USE BID PRN ON THE FACE 2 WEEKS ON AND 2 WEEKS OFF
     Route: 061
  11. DIFLUCAN [Concomitant]
     Active Substance: FLUCONAZOLE
     Indication: PRODUCT USED FOR UNKNOWN INDICATION
     Dosage: 150 MG, WEEKLY
     Route: 065
  12. VITAMIN D, ERGOCALCIFEROL [Concomitant]
     Dosage: ONCE A MONTH
     Route: 065

REACTIONS (12)
  - Atrioventricular block [Fatal]
  - Tachycardia [Fatal]
  - Bradycardia [Fatal]
  - Dyspnoea [Unknown]
  - Pulmonary embolism [Fatal]
  - Respiration abnormal [Fatal]
  - Flushing [Unknown]
  - Cardiac arrest [Fatal]
  - Cold sweat [Unknown]
  - Chest pain [Fatal]
  - Hyperhidrosis [Unknown]
  - Feeling cold [Unknown]

NARRATIVE: CASE EVENT DATE: 20170227
